FAERS Safety Report 24395713 (Version 1)
Quarter: 2024Q4

REPORT INFORMATION
  Report Type: Spontaneous
  Country: CZ (occurrence: CZ)
  Receive Date: 20241004
  Receipt Date: 20241004
  Transmission Date: 20250114
  Serious: Yes (Death, Hospitalization, Other)
  Sender: MICRO LABS
  Company Number: CZ-862174955-ML2024-05176

PATIENT
  Age: 61 Year
  Sex: Male

DRUGS (3)
  1. METFORMIN [Suspect]
     Active Substance: METFORMIN HYDROCHLORIDE
     Indication: Type 2 diabetes mellitus
  2. EMPAGLIFLOZIN [Suspect]
     Active Substance: EMPAGLIFLOZIN
     Indication: Type 2 diabetes mellitus
  3. INSULIN GLARGINE [Suspect]
     Active Substance: INSULIN GLARGINE
     Indication: Type 2 diabetes mellitus

REACTIONS (3)
  - Brain hypoxia [Fatal]
  - Ventricular fibrillation [Unknown]
  - Euglycaemic diabetic ketoacidosis [Unknown]
